FAERS Safety Report 12697542 (Version 1)
Quarter: 2016Q3

REPORT INFORMATION
  Report Type: Spontaneous
  Country: US (occurrence: None)
  Receive Date: 20160829
  Receipt Date: 20160829
  Transmission Date: 20161109
  Serious: No
  Sender: FDA-Public Use
  Company Number: None

PATIENT
  Age: 75 Year
  Sex: Female
  Weight: 95.26 kg

DRUGS (5)
  1. VITAMIN D 3 [Concomitant]
  2. IRON [Concomitant]
     Active Substance: IRON
  3. DULOXETINE 60 MG DR CAP TORRENT HEALTHWAREHOUSE.COM [Suspect]
     Active Substance: DULOXETINE
     Indication: DEPRESSION
     Route: 048
     Dates: start: 20160801, end: 20160826
  4. MULTI VITAMIN [Concomitant]
     Active Substance: VITAMINS
  5. XANAX [Concomitant]
     Active Substance: ALPRAZOLAM

REACTIONS (2)
  - Product substitution issue [None]
  - Depression [None]

NARRATIVE: CASE EVENT DATE: 20160815
